FAERS Safety Report 7378703-9 (Version None)
Quarter: 2011Q1

REPORT INFORMATION
  Report Type: 
  Country: None (occurrence: None)
  Receive Date: 20110317
  Receipt Date: 20110309
  Transmission Date: 20110831
  Serious: Yes (Other)
  Sender: FDA-Public Use
  Company Number: 2011SP011099

PATIENT
  Age: 70 Year
  Sex: Female

DRUGS (2)
  1. ZOLOFT [Concomitant]
  2. MIRTAZAPINE [Suspect]
     Indication: DEPRESSION
     Dosage: 15 MG; QD; PO
     Route: 048
     Dates: start: 20110305

REACTIONS (3)
  - MEMORY IMPAIRMENT [None]
  - CONDITION AGGRAVATED [None]
  - FEELING ABNORMAL [None]
